FAERS Safety Report 7502516-8 (Version None)
Quarter: 2011Q1

REPORT INFORMATION
  Report Type: 
  Country: None (occurrence: None)
  Receive Date: 20110318
  Receipt Date: 20100413
  Transmission Date: 20110831
  Serious: Yes (Other)
  Sender: FDA-Public Use
  Company Number: 2010SP021341

PATIENT
  Age: 40 Year
  Sex: Male

DRUGS (11)
  1. RANITIDINE [Concomitant]
  2. VICODIN [Concomitant]
  3. RIBAVIRIN [Suspect]
     Indication: HEPATITIS C
     Dosage: 400 MG;BID;PO
     Route: 048
     Dates: start: 20091204, end: 20100405
  4. AMBIEN [Concomitant]
  5. FIORINAL [Concomitant]
  6. PEG-INTRON [Suspect]
     Indication: HEPATITIS C
     Dosage: 150 MCG;QW;SC, 120 MCG;QW;SC
     Route: 058
     Dates: start: 20091204
  7. PEG-INTRON [Suspect]
     Indication: HEPATITIS C
     Dosage: 150 MCG;QW;SC, 120 MCG;QW;SC
     Route: 058
     Dates: start: 20100301, end: 20100405
  8. CELEXA [Concomitant]
  9. ZOFRAN [Concomitant]
  10. ATIVAN [Concomitant]
  11. IMODIUM A-D [Concomitant]

REACTIONS (4)
  - WEIGHT DECREASED [None]
  - VISUAL IMPAIRMENT [None]
  - PHOTOSENSITIVITY REACTION [None]
  - TINNITUS [None]
